FAERS Safety Report 24945430 (Version 2)
Quarter: 2025Q2

REPORT INFORMATION
  Report Type: Spontaneous
  Country: US (occurrence: US)
  Receive Date: 20250209
  Receipt Date: 20250417
  Transmission Date: 20250717
  Serious: No
  Sender: VIIV
  Company Number: US-VIIV HEALTHCARE- US2025014026

PATIENT
  Age: 16 Year
  Sex: Female

DRUGS (2)
  1. SELZENTRY [Suspect]
     Active Substance: MARAVIROC
     Indication: Immune system disorder
     Dosage: UNK UNK, BID 300MG
     Route: 048
     Dates: start: 202406
  2. SELZENTRY [Suspect]
     Active Substance: MARAVIROC
     Indication: Autoimmune disorder

REACTIONS (3)
  - Headache [Not Recovered/Not Resolved]
  - Product dose omission issue [Unknown]
  - Off label use [Unknown]

NARRATIVE: CASE EVENT DATE: 20240601
